FAERS Safety Report 4818474-0 (Version None)
Quarter: 2005Q4

REPORT INFORMATION
  Report Type: 
  Country: None (occurrence: None)
  Receive Date: 20051101
  Receipt Date: 20051101
  Transmission Date: 20060501
  Serious: Yes (Life-Threatening)
  Sender: FDA-Public Use
  Company Number: None

PATIENT
  Sex: Female
  Weight: 62.1 kg

DRUGS (10)
  1. VORICONAZOLE [Suspect]
     Indication: IMMUNOSUPPRESSION
     Dosage: 400MG   EVERY 24 HOURS   PO
     Route: 048
     Dates: start: 20051019, end: 20051027
  2. VORICONAZOLE [Suspect]
     Indication: PROPHYLAXIS
     Dosage: 400MG   EVERY 24 HOURS   PO
     Route: 048
     Dates: start: 20051019, end: 20051027
  3. GATIFLOXACIN [Suspect]
     Indication: IMMUNOSUPPRESSION
     Dosage: 200MG   EVERY 12 HOURS  PO
     Route: 048
     Dates: start: 20050926, end: 20051031
  4. GATIFLOXACIN [Suspect]
     Indication: PROPHYLAXIS
     Dosage: 200MG   EVERY 12 HOURS  PO
     Route: 048
     Dates: start: 20050926, end: 20051031
  5. MAGNESIUM SULFATE [Concomitant]
  6. ACYCLOVIR [Concomitant]
  7. MERREM [Concomitant]
  8. VANCOMYCIN [Concomitant]
  9. POTASSIUM CHLORIDE [Concomitant]
  10. CANCIDAS [Concomitant]

REACTIONS (3)
  - BLOOD POTASSIUM ABNORMAL [None]
  - CARDIAC ARREST [None]
  - TORSADE DE POINTES [None]
